FAERS Safety Report 10085711 (Version 5)
Quarter: 2014Q4

REPORT INFORMATION
  Report Type: Spontaneous
  Country: FI (occurrence: FI)
  Receive Date: 20140418
  Receipt Date: 20141209
  Transmission Date: 20150528
  Serious: Yes (Other)
  Sender: FDA-Public Use
  Company Number: FI-009507513-1404FIN007332

PATIENT
  Age: 33 Year
  Sex: Female

DRUGS (2)
  1. MERCILON [Suspect]
     Active Substance: DESOGESTREL\ETHINYL ESTRADIOL
     Indication: CONTRACEPTION
     Dosage: 1X1
     Route: 048
     Dates: end: 20140311
  2. CABASER [Concomitant]
     Active Substance: CABERGOLINE
     Indication: PROLACTINOMA
     Dosage: 1/2 TABLET PER WEEK
     Route: 048

REACTIONS (4)
  - Foetal death [Unknown]
  - Unintended pregnancy [Unknown]
  - Twin pregnancy [Unknown]
  - Caesarean section [Unknown]

NARRATIVE: CASE EVENT DATE: 2014
